FAERS Safety Report 9216378 (Version 1)
Quarter: 2013Q2

REPORT INFORMATION
  Report Type: Spontaneous
  Country: US (occurrence: US)
  Receive Date: 20130408
  Receipt Date: 20130408
  Transmission Date: 20140414
  Serious: Yes (Other)
  Sender: FDA-Public Use
  Company Number: PHEH2013US006602

PATIENT
  Age: 51 Year
  Sex: Female

DRUGS (10)
  1. GLEEVEC [Suspect]
     Indication: CHRONIC MYELOID LEUKAEMIA
     Dosage: 100 MG, QID
     Route: 048
  2. ALLOPURINOL [Concomitant]
  3. KLOR-CON [Concomitant]
  4. LOSARTAN [Concomitant]
  5. AMLODIPINE [Concomitant]
  6. FUROSEMIDE [Concomitant]
  7. SODIUM CHLORIDE [Concomitant]
  8. POTASSIUM [Concomitant]
  9. LASIX [Concomitant]
  10. NORVASC [Concomitant]

REACTIONS (9)
  - Cerebral ventricle dilatation [Unknown]
  - Dysstasia [Unknown]
  - Ataxia [Unknown]
  - Mental disorder [Unknown]
  - Urinary incontinence [Unknown]
  - Headache [Unknown]
  - Vomiting [Unknown]
  - Memory impairment [Unknown]
  - Fall [Unknown]
